FAERS Safety Report 5975943-8 (Version None)
Quarter: 2008Q4

REPORT INFORMATION
  Report Type: 
  Country: None (occurrence: None)
  Receive Date: 20081202
  Receipt Date: 20081118
  Transmission Date: 20090506
  Serious: Yes (Other)
  Sender: FDA-Public Use
  Company Number: NL-GENENTECH-269907

PATIENT
  Sex: Male

DRUGS (4)
  1. MABTHERA [Suspect]
     Indication: PEMPHIGUS
     Dosage: 500 MG, UNK
     Route: 042
     Dates: start: 20080929
  2. MYFORTIC [Concomitant]
     Indication: DRUG USE FOR UNKNOWN INDICATION
  3. PREDNISOLONE [Concomitant]
     Indication: DRUG USE FOR UNKNOWN INDICATION
  4. ACENOCOUMAROL [Concomitant]
     Indication: DRUG USE FOR UNKNOWN INDICATION

REACTIONS (1)
  - SUPRAVENTRICULAR TACHYCARDIA [None]
